FAERS Safety Report 24994570 (Version 1)
Quarter: 2025Q1

REPORT INFORMATION
  Report Type: Spontaneous
  Country: US (occurrence: US)
  Receive Date: 20250221
  Receipt Date: 20250221
  Transmission Date: 20250409
  Serious: Yes (Other)
  Sender: TEVA
  Company Number: US-TEVA-VS-3298769

PATIENT
  Age: 63 Year
  Sex: Male

DRUGS (1)
  1. COPAXONE [Suspect]
     Active Substance: GLATIRAMER ACETATE
     Indication: Relapsing-remitting multiple sclerosis
     Route: 065

REACTIONS (6)
  - Accident at work [Unknown]
  - Leg amputation [Unknown]
  - Injection site atrophy [Unknown]
  - Gait disturbance [Unknown]
  - Anal incontinence [Unknown]
  - Peroneal nerve palsy [Unknown]
